FAERS Safety Report 21105489 (Version 1)
Quarter: 2022Q3

REPORT INFORMATION
  Report Type: Report from Study
  Country: US (occurrence: US)
  Receive Date: 20220720
  Receipt Date: 20220720
  Transmission Date: 20221027
  Serious: Yes (Hospitalization)
  Sender: FDA-Public Use
  Company Number: US-ABBVIE-21K-163-4183106-00

PATIENT
  Sex: Female

DRUGS (6)
  1. IMBRUVICA [Suspect]
     Active Substance: IBRUTINIB
     Indication: Pancreatitis chronic
     Route: 048
     Dates: start: 202108, end: 202112
  2. IMBRUVICA [Suspect]
     Active Substance: IBRUTINIB
     Indication: Chronic lymphocytic leukaemia
     Route: 048
  3. IMBRUVICA [Suspect]
     Active Substance: IBRUTINIB
     Route: 048
  4. COVID-19 VACCINE [Concomitant]
     Indication: COVID-19 immunisation
     Dosage: FIRST DOSE
     Route: 030
  5. COVID-19 VACCINE [Concomitant]
     Dosage: SECOND DOSE
     Route: 030
  6. COVID-19 VACCINE [Concomitant]
     Dosage: THIRD DOSE/BOOSTER DOSE
     Route: 030

REACTIONS (18)
  - SARS-CoV-2 test positive [Unknown]
  - Pneumonia [Unknown]
  - Tinnitus [Recovering/Resolving]
  - Pain of skin [Unknown]
  - Skin irritation [Not Recovered/Not Resolved]
  - Malaise [Unknown]
  - Palpitations [Not Recovered/Not Resolved]
  - Back pain [Not Recovered/Not Resolved]
  - Therapeutic product effect incomplete [Recovering/Resolving]
  - Insomnia [Not Recovered/Not Resolved]
  - Dizziness [Recovered/Resolved]
  - Anxiety [Not Recovered/Not Resolved]
  - Initial insomnia [Unknown]
  - Pruritus [Unknown]
  - Musculoskeletal stiffness [Not Recovered/Not Resolved]
  - Blood pressure increased [Not Recovered/Not Resolved]
  - Joint swelling [Not Recovered/Not Resolved]
  - Rash macular [Not Recovered/Not Resolved]
